FAERS Safety Report 25862856 (Version 1)
Quarter: 2025Q3

REPORT INFORMATION
  Report Type: Spontaneous
  Country: TH (occurrence: TH)
  Receive Date: 20250930
  Receipt Date: 20250930
  Transmission Date: 20251020
  Serious: Yes (Other)
  Sender: MERCK SHARP & DOHME LLC
  Company Number: TH-009507513-2332581

PATIENT
  Age: 73 Year
  Sex: Female

DRUGS (7)
  1. KEYTRUDA [Suspect]
     Active Substance: PEMBROLIZUMAB
     Indication: PD-L1 positive cancer
     Dosage: 100 MG (2 MG/KG) Q3WEEKS
     Dates: start: 20241128, end: 20241128
  2. KEYTRUDA [Suspect]
     Active Substance: PEMBROLIZUMAB
     Indication: PD-L1 positive cancer
     Dosage: 100 MG (2 MG/KG) Q3WEEKS
     Dates: start: 20241219
  3. KEYTRUDA [Suspect]
     Active Substance: PEMBROLIZUMAB
     Indication: PD-L1 positive cancer
     Dosage: 100 MG (2 MG/KG) Q3WEEKS
     Dates: end: 20250729
  4. TS-1 [Suspect]
     Active Substance: GIMERACIL\OTERACIL POTASSIUM\TEGAFUR
     Indication: PD-L1 positive cancer
     Dates: start: 20241128
  5. TS-1 [Suspect]
     Active Substance: GIMERACIL\OTERACIL POTASSIUM\TEGAFUR
     Indication: PD-L1 positive cancer
     Dates: start: 20241219
  6. TS-1 [Suspect]
     Active Substance: GIMERACIL\OTERACIL POTASSIUM\TEGAFUR
     Indication: PD-L1 positive cancer
     Dates: end: 20250729
  7. OXALIPLATIN [Suspect]
     Active Substance: OXALIPLATIN
     Indication: PD-L1 positive cancer
     Dosage: 100 MG/M2 EQUAL TO 135 MG Q21 DAYS ON D1
     Dates: start: 2025, end: 20250729

REACTIONS (6)
  - Malignant neoplasm progression [Unknown]
  - Suture related complication [Recovering/Resolving]
  - Excessive granulation tissue [Unknown]
  - Hiatus hernia [Unknown]
  - Product use issue [Unknown]
  - Tumour embolism [Unknown]

NARRATIVE: CASE EVENT DATE: 20241128
